FAERS Safety Report 12956774 (Version 1)
Quarter: 2016Q4

REPORT INFORMATION
  Report Type: Spontaneous
  Country: US (occurrence: US)
  Receive Date: 20161119
  Receipt Date: 20161119
  Transmission Date: 20170207
  Serious: No
  Sender: FDA-Public Use
  Company Number: US-009507513-1611USA003928

PATIENT
  Sex: Male

DRUGS (1)
  1. CRIXIVAN [Suspect]
     Active Substance: INDINAVIR SULFATE
     Route: 048

REACTIONS (2)
  - Adverse event [Unknown]
  - Drug hypersensitivity [Unknown]
